FAERS Safety Report 4400965-8 (Version None)
Quarter: 2004Q3

REPORT INFORMATION
  Report Type: 
  Country: None (occurrence: None)
  Receive Date: 20040907
  Receipt Date: 20030827
  Transmission Date: 20050211
  Serious: No
  Sender: FDA-Public Use
  Company Number: US-BRISTOL-MYERS SQUIBB COMPANY-12367991

PATIENT
  Age: 43 Year
  Sex: Female
  Weight: 58 kg

DRUGS (2)
  1. COUMADIN [Suspect]
     Indication: HAEMORRHAGIC STROKE
     Dosage: INTERRUPTED IT ON 24 AND 25-AUG-03.
     Route: 048
     Dates: start: 20021210
  2. ZONEGRAN [Suspect]
     Dates: start: 20030801

REACTIONS (3)
  - FATIGUE [None]
  - RASH [None]
  - THINKING ABNORMAL [None]
